FAERS Safety Report 5218179-0 (Version None)
Quarter: 2007Q1

REPORT INFORMATION
  Report Type: 
  Country: None (occurrence: None)
  Receive Date: 20061130
  Receipt Date: 20060705
  Transmission Date: 20070707
  Serious: Yes (Hospitalization)
  Sender: FDA-Public Use
  Company Number: US200603000189

PATIENT
  Age: 43 Year
  Sex: Male
  Weight: 66.2 kg

DRUGS (11)
  1. ZYPREXA [Suspect]
     Dosage: SEE IMAGE
     Dates: start: 19980817, end: 19980824
  2. ZYPREXA [Suspect]
     Dosage: SEE IMAGE
     Dates: start: 19980824, end: 20010212
  3. ZYPREXA [Suspect]
     Dosage: SEE IMAGE
     Dates: start: 20010212, end: 20020701
  4. ZYPREXA [Suspect]
     Dosage: SEE IMAGE
     Dates: start: 20020701, end: 20040929
  5. ABILIFY [Concomitant]
  6. SEROQUEL [Concomitant]
  7. DEPAKOTE [Concomitant]
  8. LITHIUM CARBONATE [Concomitant]
  9. WELLBUTRIN [Concomitant]
  10. SINEQUAN [Concomitant]
  11. PAXIL [Concomitant]

REACTIONS (10)
  - ACETONAEMIA [None]
  - DIABETES MELLITUS INSULIN-DEPENDENT [None]
  - DYSLIPIDAEMIA [None]
  - GLYCOSURIA [None]
  - HYPERGLYCAEMIA [None]
  - HYPERLIPIDAEMIA [None]
  - HYPERTENSION [None]
  - HYPOGLYCAEMIA [None]
  - KETONURIA [None]
  - WEIGHT DECREASED [None]
